FAERS Safety Report 9712579 (Version 1)
Quarter: 2013Q4

REPORT INFORMATION
  Report Type: Spontaneous
  Country: US (occurrence: US)
  Receive Date: 20131126
  Receipt Date: 20131126
  Transmission Date: 20140711
  Serious: No
  Sender: FDA-Public Use
  Company Number: US-BRISTOL-MYERS SQUIBB COMPANY-18895011

PATIENT
  Age: 45 Year
  Sex: Male
  Weight: 131.52 kg

DRUGS (3)
  1. BYDUREON [Suspect]
  2. JANUMET [Concomitant]
  3. TRADJENTA [Concomitant]

REACTIONS (3)
  - Injection site swelling [Not Recovered/Not Resolved]
  - Injection site pruritus [Not Recovered/Not Resolved]
  - Weight decreased [Unknown]
